FAERS Safety Report 6936347-4 (Version None)
Quarter: 2010Q3

REPORT INFORMATION
  Report Type: 
  Country: None (occurrence: None)
  Receive Date: 20100818
  Receipt Date: 20100802
  Transmission Date: 20110219
  Serious: Yes (Hospitalization, Other)
  Sender: FDA-Public Use
  Company Number: ACO_01665_2010

PATIENT
  Age: 50 Year
  Sex: Female
  Weight: 65.7716 kg

DRUGS (8)
  1. AMPYRA [Suspect]
     Indication: MULTIPLE SCLEROSIS
     Dosage: 10 MG BID ORAL, 10 MG, BID ORAL
     Route: 048
     Dates: start: 20100301, end: 20100401
  2. AMPYRA [Suspect]
     Indication: MULTIPLE SCLEROSIS
     Dosage: 10 MG BID ORAL, 10 MG, BID ORAL
     Route: 048
     Dates: start: 20100501, end: 20100616
  3. K-DUR [Concomitant]
  4. FOLIC ACID [Concomitant]
  5. METAMUCIL-2 [Concomitant]
  6. LISINOPRIL [Concomitant]
  7. PRILOSEC [Concomitant]
  8. TRANSDERM PATCH [Concomitant]

REACTIONS (6)
  - COGNITIVE DISORDER [None]
  - CONVULSION [None]
  - FAECALOMA [None]
  - SEPSIS [None]
  - SHOCK [None]
  - THINKING ABNORMAL [None]
